FAERS Safety Report 8276481-2 (Version None)
Quarter: 2012Q2

REPORT INFORMATION
  Report Type: 
  Country: None (occurrence: None)
  Receive Date: 20120412
  Receipt Date: 20120328
  Transmission Date: 20120825
  Serious: Yes (Hospitalization, Other)
  Sender: FDA-Public Use
  Company Number: IT-RANBAXY-2011RR-48665

PATIENT
  Age: 58 Year
  Sex: Male
  Weight: 130 kg

DRUGS (6)
  1. ZERINOL [Concomitant]
     Indication: OROPHARYNGEAL PAIN
     Dosage: 300/2 MG
     Route: 048
  2. CANDESARTAN CILEXETIL AND HYDROCHLOROTHIAZIDE [Concomitant]
     Indication: HYPERTENSION
     Dosage: 16/12.5 MG, QD
     Route: 065
  3. AMOXICILLIN [Suspect]
     Indication: TOOTHACHE
     Dosage: 1 G, UNK
     Route: 065
  4. AMOXICILLIN [Suspect]
     Indication: ACCIDENTAL EXPOSURE
     Dosage: UNK G, UNK
     Route: 062
  5. AMOXICILLIN AND CLAVULANATE POTASSIUM [Suspect]
     Indication: OROPHARYNGEAL PAIN
     Dosage: 1 G, UNK
     Route: 048
  6. AVANDAMET [Concomitant]
     Indication: TYPE 2 DIABETES MELLITUS
     Dosage: 2/1000 MG, BID
     Route: 065

REACTIONS (4)
  - DRUG HYPERSENSITIVITY [None]
  - ACUTE MYOCARDIAL INFARCTION [None]
  - ANAPHYLACTIC REACTION [None]
  - SELF-MEDICATION [None]
